FAERS Safety Report 4987328-1 (Version None)
Quarter: 2006Q2

REPORT INFORMATION
  Report Type: 
  Country: None (occurrence: None)
  Receive Date: 20060501
  Receipt Date: 20051004
  Transmission Date: 20061013
  Serious: Yes (Death, Hospitalization)
  Sender: FDA-Public Use
  Company Number: US-MERCK-0510USA03574

PATIENT
  Age: 73 Year
  Sex: Male
  Weight: 100 kg

DRUGS (8)
  1. VIOXX [Suspect]
     Indication: ARTHRITIS
     Route: 048
     Dates: start: 20000501, end: 20040901
  2. ASPIRIN [Concomitant]
     Indication: PROPHYLAXIS
     Route: 065
  3. PRINZIDE [Concomitant]
     Route: 065
  4. PRILOSEC [Concomitant]
     Route: 065
  5. COMBIVENT [Concomitant]
     Route: 065
  6. SEREVENT [Concomitant]
     Route: 065
  7. FLOVENT [Concomitant]
     Route: 065
  8. VIAGRA [Concomitant]
     Route: 065

REACTIONS (16)
  - ASTHENIA [None]
  - ATRIAL FIBRILLATION [None]
  - CEREBROVASCULAR ACCIDENT [None]
  - DEATH [None]
  - DIABETES MELLITUS [None]
  - FACE INJURY [None]
  - FALL [None]
  - HYPERTENSIVE EMERGENCY [None]
  - ISCHAEMIC STROKE [None]
  - LACERATION [None]
  - MENTAL STATUS CHANGES [None]
  - MOVEMENT DISORDER [None]
  - MUSCULOSKELETAL PAIN [None]
  - NECK PAIN [None]
  - PYREXIA [None]
  - XANTHOCHROMIA [None]
